FAERS Safety Report 13682352 (Version 1)
Quarter: 2017Q2

REPORT INFORMATION
  Report Type: Report from Study
  Country: US (occurrence: US)
  Receive Date: 20170623
  Receipt Date: 20170623
  Transmission Date: 20170830
  Serious: Yes (Hospitalization)
  Sender: FDA-Public Use
  Company Number: US-MALLINCKRODT-T201700913

PATIENT
  Age: 23 Year
  Sex: Female
  Weight: 131 kg

DRUGS (6)
  1. BENADRYL [Concomitant]
     Active Substance: DIPHENHYDRAMINE HYDROCHLORIDE
     Indication: DERMATITIS ALLERGIC
     Dosage: 25 MG ONCE
     Route: 048
     Dates: start: 20170227, end: 20170227
  2. PREDNISONE. [Concomitant]
     Active Substance: PREDNISONE
     Indication: SYSTEMIC LUPUS ERYTHEMATOSUS
     Dosage: 10 MG THREE TIMES DAILY
     Route: 048
     Dates: start: 2012
  3. BLINDED PLACEBO [Suspect]
     Active Substance: INVESTIGATIONAL PRODUCT
     Indication: SYSTEMIC LUPUS ERYTHEMATOSUS
     Dosage: 1 ML QOD
     Route: 058
     Dates: start: 20170207, end: 20170227
  4. PLAQUINOL [Concomitant]
     Active Substance: HYDROXYCHLOROQUINE SULFATE
     Indication: SYSTEMIC LUPUS ERYTHEMATOSUS
     Dosage: 200 MG TWICE DAILY
     Route: 048
     Dates: start: 2012
  5. BLINDED REPOSITORY CORTICOTROPIN INJECTION [Suspect]
     Active Substance: CORTICOTROPIN
     Indication: SYSTEMIC LUPUS ERYTHEMATOSUS
     Dosage: 1 ML QOD
     Route: 058
     Dates: start: 20170207, end: 20170227
  6. IMURAN [Concomitant]
     Active Substance: AZATHIOPRINE
     Indication: SYSTEMIC LUPUS ERYTHEMATOSUS
     Dosage: 50 MG THREE TIMES DAILY
     Route: 048
     Dates: start: 2014

REACTIONS (1)
  - Systemic lupus erythematosus [Recovered/Resolved]

NARRATIVE: CASE EVENT DATE: 20170305
